FAERS Safety Report 4933028-3 (Version None)
Quarter: 2006Q1

REPORT INFORMATION
  Report Type: 
  Country: None (occurrence: None)
  Receive Date: 20060301
  Receipt Date: 20060216
  Transmission Date: 20060701
  Serious: Yes (Disabling, Other)
  Sender: FDA-Public Use
  Company Number: 2006025063

PATIENT
  Sex: Male
  Weight: 104.3273 kg

DRUGS (3)
  1. VIAGRA [Suspect]
     Indication: ERECTILE DYSFUNCTION
     Dosage: 100 MG (100 MG, 1 AS NECESSARY), ORAL
     Route: 048
  2. ARTHROTEC [Suspect]
     Indication: ILL-DEFINED DISORDER
  3. LOTREL [Concomitant]

REACTIONS (3)
  - ARTHROPATHY [None]
  - BLOOD PRESSURE SYSTOLIC INCREASED [None]
  - DRUG EFFECT DECREASED [None]
